FAERS Safety Report 11398062 (Version 4)
Quarter: 2019Q3

REPORT INFORMATION
  Report Type: Spontaneous
  Country: CO (occurrence: CO)
  Receive Date: 20150820
  Receipt Date: 20190818
  Transmission Date: 20191004
  Serious: Yes (Other)
  Sender: FDA-Public Use
  Company Number: CO-AMGEN-COLSP2015084253

PATIENT
  Age: 73 Year
  Sex: Female

DRUGS (3)
  1. ENBREL [Suspect]
     Active Substance: ETANERCEPT
     Indication: RHEUMATOID ARTHRITIS
     Dosage: 50 MILLIGRAM, QWK
     Route: 058
     Dates: start: 2013, end: 201506
  2. ENBREL [Suspect]
     Active Substance: ETANERCEPT
     Dosage: 50 MILLIGRAM, QWK
     Route: 058
     Dates: start: 2015
  3. ENBREL [Suspect]
     Active Substance: ETANERCEPT
     Dosage: 50 MILLIGRAM EVERY 10 DAYS
     Route: 058

REACTIONS (9)
  - Arthralgia [Unknown]
  - Feeling hot [Unknown]
  - Blindness [Not Recovered/Not Resolved]
  - Hypoacusis [Not Recovered/Not Resolved]
  - Pain in extremity [Not Recovered/Not Resolved]
  - Bone pain [Unknown]
  - Off label use [Unknown]
  - Pulmonary oedema [Not Recovered/Not Resolved]
  - Fibromyalgia [Unknown]

NARRATIVE: CASE EVENT DATE: 2013
